FAERS Safety Report 19130300 (Version 2)
Quarter: 2021Q2

REPORT INFORMATION
  Report Type: Report from Study
  Country: US (occurrence: US)
  Receive Date: 20210413
  Receipt Date: 20210510
  Transmission Date: 20210717
  Serious: Yes (Other)
  Sender: FDA-Public Use
  Company Number: US-BAYER-2021-105695

PATIENT
  Age: 48 Year
  Sex: Female

DRUGS (1)
  1. VITRAKVI [Suspect]
     Active Substance: LAROTRECTINIB
     Indication: BREAST CANCER
     Dosage: 100 MG, BID
     Route: 048
     Dates: start: 20210304, end: 20210315

REACTIONS (10)
  - Pain [Recovered/Resolved]
  - Dizziness [Recovered/Resolved]
  - Oral discomfort [Not Recovered/Not Resolved]
  - Swelling [Recovered/Resolved]
  - Visual impairment [Recovered/Resolved]
  - Angioedema [Recovered/Resolved]
  - Abdominal distension [Recovered/Resolved]
  - Nausea [Recovered/Resolved]
  - Feeling cold [Not Recovered/Not Resolved]
  - Fatigue [Recovered/Resolved]
